FAERS Safety Report 18109615 (Version 3)
Quarter: 2020Q4

REPORT INFORMATION
  Report Type: Spontaneous
  Country: US (occurrence: US)
  Receive Date: 20200804
  Receipt Date: 20201028
  Transmission Date: 20210113
  Serious: Yes (Other)
  Sender: FDA-Public Use
  Company Number: US-PFIZER INC-2019054018

PATIENT
  Age: 77 Year
  Sex: Female
  Weight: 73.48 kg

DRUGS (11)
  1. LANREOTIDE [Concomitant]
     Active Substance: LANREOTIDE
     Indication: CARCINOID TUMOUR
     Dosage: 100 MG, MONTHLY (100MG ONCE A MONTH )
  2. B COMPLEX B12 [Concomitant]
     Indication: PLATELET COUNT DECREASED
     Dosage: 250 UG, 3X/DAY
  3. BRILINTA [Concomitant]
     Active Substance: TICAGRELOR
     Dosage: 90 MG, 2X/DAY
  4. XELJANZ XR [Suspect]
     Active Substance: TOFACITINIB CITRATE
     Indication: RHEUMATOID ARTHRITIS
     Dosage: 11 MG, 1X/DAY
     Route: 048
  5. WELCHOL [Concomitant]
     Active Substance: COLESEVELAM HYDROCHLORIDE
     Dosage: UNK
  6. FOLIC ACID. [Concomitant]
     Active Substance: FOLIC ACID
     Indication: PLATELET COUNT DECREASED
     Dosage: 800 UG, DAILY (400MCG TWO TABLETS DAILY)
  7. PROLIA [Concomitant]
     Active Substance: DENOSUMAB
     Dosage: UNK (EVERY SIX MONTHS)
  8. PRIMIDONE. [Concomitant]
     Active Substance: PRIMIDONE
     Indication: TREMOR
     Dosage: 50 MG, 4X/DAY
  9. ARIMIDEX [Concomitant]
     Active Substance: ANASTROZOLE
     Dosage: UNK
  10. CO-Q-10 PLUS [Concomitant]
     Indication: SUPPORTIVE CARE
     Dosage: 100 MG, 1X/DAY
  11. LEVOTHYROXINE. [Concomitant]
     Active Substance: LEVOTHYROXINE
     Indication: HYPOTHYROIDISM
     Dosage: 100 UG, DAILY

REACTIONS (4)
  - Gait inability [Unknown]
  - Thrombocytopenia [Unknown]
  - Amnesia [Unknown]
  - Blood creatine increased [Unknown]

NARRATIVE: CASE EVENT DATE: 2020
